FAERS Safety Report 20139734 (Version 1)
Quarter: 2021Q4

REPORT INFORMATION
  Report Type: Spontaneous
  Country: GB (occurrence: GB)
  Receive Date: 20211202
  Receipt Date: 20211202
  Transmission Date: 20220304
  Serious: Yes (Life-Threatening, Hospitalization, Other)
  Sender: FDA-Public Use
  Company Number: None

PATIENT
  Age: 49 Year
  Sex: Female
  Weight: 98 kg

DRUGS (10)
  1. SULFASALAZINE [Suspect]
     Active Substance: SULFASALAZINE
     Indication: Rheumatoid arthritis
     Dosage: 1 G, 2X/DAY
     Route: 048
     Dates: start: 20210902, end: 20211015
  2. AMOXICILLIN [Concomitant]
     Active Substance: AMOXICILLIN
  3. BENZYDAMINE [Concomitant]
     Active Substance: BENZYDAMINE
  4. CODEINE [Concomitant]
     Active Substance: CODEINE
  5. FLUCLOXACILLINE [FLUCLOXACILLIN] [Concomitant]
  6. BECLOMETHASONE\FORMOTEROL [Concomitant]
     Active Substance: BECLOMETHASONE\FORMOTEROL
  7. LANSOPRAZOLE [Concomitant]
     Active Substance: LANSOPRAZOLE
  8. NYSTATIN [Concomitant]
     Active Substance: NYSTATIN
  9. PREDNISOLONE [Concomitant]
     Active Substance: PREDNISOLONE
  10. ALBUTEROL [Concomitant]
     Active Substance: ALBUTEROL

REACTIONS (1)
  - Neutropenic sepsis [Recovered/Resolved]

NARRATIVE: CASE EVENT DATE: 20211015
